FAERS Safety Report 11177666 (Version 2)
Quarter: 2015Q2

REPORT INFORMATION
  Report Type: Spontaneous
  Country: US (occurrence: US)
  Receive Date: 20150610
  Receipt Date: 20150617
  Transmission Date: 20150821
  Serious: No
  Sender: FDA-Public Use
  Company Number: US-PFIZER INC-2015192187

PATIENT
  Age: 45 Year
  Sex: Female
  Weight: 66 kg

DRUGS (1)
  1. EFFEXOR XR [Suspect]
     Active Substance: VENLAFAXINE HYDROCHLORIDE
     Indication: DEPRESSION
     Dosage: 150 MG, UNK

REACTIONS (7)
  - Drug effect incomplete [Unknown]
  - Product quality issue [Unknown]
  - Dizziness [Unknown]
  - Drug withdrawal syndrome [Unknown]
  - Nervousness [Unknown]
  - Visual impairment [Unknown]
  - Headache [Unknown]

NARRATIVE: CASE EVENT DATE: 201506
